FAERS Safety Report 8935726 (Version 2)
Quarter: 2013Q3

REPORT INFORMATION
  Report Type: Report from Study
  Country: MX (occurrence: MX)
  Receive Date: 20121130
  Receipt Date: 20130828
  Transmission Date: 20140515
  Serious: Yes (Other)
  Sender: FDA-Public Use
  Company Number: PHHY2012MX107818

PATIENT
  Age: 54 Year
  Sex: Female

DRUGS (8)
  1. EXFORGE HCT [Suspect]
     Indication: HYPERTENSION
     Dosage: 1 DF, UNK(VALS 320 MG, AMLO 10 MG, HYDR 25 MG)
     Route: 048
     Dates: start: 201111, end: 201202
  2. EXFORGE [Suspect]
     Dosage: 1 UKN(320/5MG), DAILY
  3. TENORMIN [Concomitant]
     Dosage: 50 MG, Q12H
  4. NOOTROPIL [Concomitant]
     Dosage: 1 UKN, DAILY
  5. EUTIROX [Concomitant]
     Dosage: 1 UKN, DAILY
  6. DOLOCAM-PLUS [Concomitant]
     Indication: MIGRAINE
     Dosage: 1 UKN, AS NEEDED
  7. ZALDIAR [Concomitant]
     Indication: MIGRAINE
     Dosage: 0.5 UKN, AS NEEDED
  8. NIMOTOP [Concomitant]
     Dosage: UNK UKN, UNK

REACTIONS (3)
  - Brain neoplasm [Not Recovered/Not Resolved]
  - Aneurysm [Not Recovered/Not Resolved]
  - Vision blurred [Not Recovered/Not Resolved]
